FAERS Safety Report 8444673-5 (Version None)
Quarter: 2012Q2

REPORT INFORMATION
  Report Type: 
  Country: None (occurrence: None)
  Receive Date: 20120618
  Receipt Date: 20120618
  Transmission Date: 20120825
  Serious: Yes (Hospitalization)
  Sender: FDA-Public Use
  Company Number: US-PFIZER INC-2012141249

PATIENT
  Sex: Female

DRUGS (3)
  1. LIPITOR [Suspect]
  2. DILANTIN [Suspect]
  3. PROTONIX [Suspect]

REACTIONS (2)
  - CONVULSION [None]
  - HYPOAESTHESIA [None]
